FAERS Safety Report 24349131 (Version 2)
Quarter: 2024Q4

REPORT INFORMATION
  Report Type: Spontaneous
  Country: DE (occurrence: DE)
  Receive Date: 20240923
  Receipt Date: 20241210
  Transmission Date: 20250115
  Serious: Yes (Death, Other)
  Sender: CELLTRION
  Company Number: DE-ROCHE-3531473

PATIENT

DRUGS (4)
  1. BEVACIZUMAB [Suspect]
     Active Substance: BEVACIZUMAB
     Indication: Neoplasm malignant
     Dosage: 1275 MG, EVERY 3 WEEKS (DATE OF MOST RECENT DOSE 1275 MG OF DRUG PRIOR TO AE: 13/DEC/2023)
     Route: 042
     Dates: start: 20230831
  2. ATEZOLIZUMAB [Suspect]
     Active Substance: ATEZOLIZUMAB
     Indication: Neoplasm malignant
     Dosage: 1200 MG, EVERY 3 WEEKS (DATE OF MOST RECENT DOSE 1200 MG OF DRUG: 13/DEC/2023)
     Route: 042
     Dates: start: 20230831
  3. CARBOPLATIN [Suspect]
     Active Substance: CARBOPLATIN
     Indication: Neoplasm malignant
     Dosage: 637.25 MG, EVERY 3 WEEKS (DATE OF MOST RECENT DOSE 637.25 MG PRIOR TO AE: 13/DEC/2023)
     Route: 042
     Dates: start: 20230831
  4. PACLITAXEL [Suspect]
     Active Substance: PACLITAXEL
     Indication: Neoplasm malignant
     Dosage: 420 MG, EVERY 3 WEEKS (DATE OF MOST RECENT DOSE 420 MG PRIOR TO AE: 13/DEC/2023)
     Route: 042
     Dates: start: 20230831

REACTIONS (2)
  - Neoplasm malignant [Fatal]
  - Thrombocytopenia [Not Recovered/Not Resolved]

NARRATIVE: CASE EVENT DATE: 20240103
